FAERS Safety Report 5218302-8 (Version None)
Quarter: 2007Q1

REPORT INFORMATION
  Report Type: 
  Country: None (occurrence: None)
  Receive Date: 20061130
  Receipt Date: 20060607
  Transmission Date: 20070707
  Serious: Yes (Other)
  Sender: FDA-Public Use
  Company Number: US200602005133

PATIENT
  Age: 62 Year
  Sex: Female
  Weight: 122.4 kg

DRUGS (3)
  1. ZYPREXA [Suspect]
     Indication: DEPRESSION
     Dosage: 40 MG ORAL
     Route: 048
     Dates: start: 20000101, end: 20041201
  2. CYMBALTA [Suspect]
     Indication: MAJOR DEPRESSION
     Dosage: 30 MG
     Dates: start: 20060531
  3. SEROQUEL [Concomitant]

REACTIONS (11)
  - BLOOD CHOLESTEROL INCREASED [None]
  - BLOOD POTASSIUM DECREASED [None]
  - DIABETES MELLITUS [None]
  - DIABETIC NEUROPATHY [None]
  - DIARRHOEA [None]
  - HYPOTHYROIDISM [None]
  - PAIN [None]
  - PANCREATITIS [None]
  - PRESCRIBED OVERDOSE [None]
  - TOOTH DISORDER [None]
  - WEIGHT INCREASED [None]
